FAERS Safety Report 8419519 (Version 2)
Quarter: 2013Q3

REPORT INFORMATION
  Report Type: Report from Study
  Country: CH (occurrence: CH)
  Receive Date: 20120221
  Receipt Date: 20130903
  Transmission Date: 20140515
  Serious: Yes (Hospitalization)
  Sender: FDA-Public Use
  Company Number: PHHO2012CH002634

PATIENT
  Age: 75 Year
  Sex: Male
  Weight: 68.4 kg

DRUGS (5)
  1. AMLODIPINE [Suspect]
     Indication: HYPERTENSION
     Dosage: 10 MG, QD
  2. PLACEBO [Suspect]
     Indication: CARDIOVASCULAR DISORDER
     Route: 048
     Dates: start: 20090517, end: 20111221
  3. ATACAND PLUS [Suspect]
     Indication: HYPERTENSION
     Dosage: 1 X 16/12.5 MG
  4. NOVOMIX [Concomitant]
     Indication: DIABETES MELLITUS
     Dosage: 28 U, UNK
     Dates: start: 20111129
  5. METFIN [Concomitant]
     Indication: DIABETES MELLITUS
     Dosage: 1 G, BID

REACTIONS (1)
  - Concussion [Recovered/Resolved]
